FAERS Safety Report 4498477-9 (Version None)
Quarter: 2004Q4

REPORT INFORMATION
  Report Type: 
  Country: None (occurrence: None)
  Receive Date: 20041105
  Receipt Date: 20041026
  Transmission Date: 20050328
  Serious: Yes (Other)
  Sender: FDA-Public Use
  Company Number: 2004-10-1993

PATIENT
  Age: 55 Year

DRUGS (2)
  1. INTRON A [Suspect]
     Indication: MALIGNANT MELANOMA
     Dosage: SEE IMAGE
     Route: 058
  2. RADIATION THERAPY NO DOSE FORM [Suspect]
     Indication: MALIGNANT MELANOMA
     Dosage: 2 GY X-RAY THERAPY

REACTIONS (7)
  - ERYTHEMA [None]
  - OEDEMA PERIPHERAL [None]
  - SKIN DESQUAMATION [None]
  - SKIN FIBROSIS [None]
  - SKIN TOXICITY [None]
  - TELANGIECTASIA [None]
  - THERAPEUTIC AGENT TOXICITY [None]
